FAERS Safety Report 19569957 (Version 2)
Quarter: 2022Q2

REPORT INFORMATION
  Report Type: Spontaneous
  Country: JP (occurrence: JP)
  Receive Date: 20210715
  Receipt Date: 20220531
  Transmission Date: 20220720
  Serious: Yes (Other)
  Sender: FDA-Public Use
  Company Number: JP-PFIZER INC-2021841958

PATIENT
  Age: 54 Year
  Sex: Male

DRUGS (1)
  1. METHOTREXATE SODIUM [Suspect]
     Active Substance: METHOTREXATE SODIUM
     Indication: Rheumatoid arthritis
     Dosage: 6 MG, WEEKLY

REACTIONS (5)
  - Hydronephrosis [Recovering/Resolving]
  - Urethral stenosis [Recovering/Resolving]
  - Postrenal failure [Recovering/Resolving]
  - Tuberculosis [Recovering/Resolving]
  - Renal impairment [Unknown]
